FAERS Safety Report 4864640-8 (Version None)
Quarter: 2005Q4

REPORT INFORMATION
  Report Type: 
  Country: None (occurrence: None)
  Receive Date: 20051201
  Receipt Date: 20050704
  Transmission Date: 20060501
  Serious: No
  Sender: FDA-Public Use
  Company Number: 2005PV000241

PATIENT
  Age: 41 Year
  Sex: Female
  Weight: 92.9874 kg

DRUGS (1)
  1. BYETTA [Suspect]
     Indication: DIABETES MELLITUS NON-INSULIN-DEPENDENT
     Dosage: 5 MCG; BID; SC
     Route: 058
     Dates: start: 20050608

REACTIONS (3)
  - BLOOD GLUCOSE INCREASED [None]
  - MALAISE [None]
  - PHARYNGOLARYNGEAL PAIN [None]
